FAERS Safety Report 11102358 (Version 1)
Quarter: 2015Q2

REPORT INFORMATION
  Report Type: Spontaneous
  Country: US (occurrence: None)
  Receive Date: 20150507
  Receipt Date: 20150507
  Transmission Date: 20150821
  Serious: Yes (Life-Threatening, Other)
  Sender: FDA-Public Use
  Company Number: 001914646A

PATIENT
  Age: 61 Year
  Sex: Female

DRUGS (8)
  1. PROACTIV PLUS COMPLEXION PERFECTING HYDRATOR [Suspect]
     Active Substance: SALICYLIC ACID
     Indication: ACNE
     Dosage: DERMAL
     Dates: start: 20150407, end: 20150411
  2. PROACTIV PLUS SKIN PURIFYING MASK [Suspect]
     Active Substance: SULFUR
     Indication: ACNE
     Dosage: DERMAL
     Dates: start: 20150407, end: 20150411
  3. PROACTIV PLUS PORE TARGETING TREATMENT [Suspect]
     Active Substance: BENZOYL PEROXIDE
     Indication: ACNE
     Dosage: DERMAL
     Dates: start: 20150407, end: 20150411
  4. PROACTIV SKIN LIGHTENING [Suspect]
     Active Substance: HYDROQUINONE
     Indication: ACNE
     Dosage: DERMAL
     Dates: start: 20150407, end: 20150411
  5. PROACTIV PLUS EMERGENCY BLEMISH RELIEF [Suspect]
     Active Substance: BENZOYL PEROXIDE
     Indication: ACNE
     Dosage: DERMAL
     Dates: start: 20150407, end: 20150411
  6. EPIPEN [Concomitant]
     Active Substance: EPINEPHRINE
  7. PROACTIVPLUS SKIN SMOOTHING EXFOLIATOR [Suspect]
     Active Substance: BENZOYL PEROXIDE
     Indication: ACNE
     Dosage: DERMAL
     Dates: start: 20150407, end: 20150411
  8. PROACTIV PLUS CLEANSING BODY BAR [Suspect]
     Active Substance: SALICYLIC ACID
     Indication: ACNE
     Dosage: DERMAL
     Dates: start: 20150407, end: 20150411

REACTIONS (4)
  - Swelling face [None]
  - Swollen tongue [None]
  - Pharyngeal oedema [None]
  - Eye swelling [None]

NARRATIVE: CASE EVENT DATE: 20150408
